FAERS Safety Report 8761996 (Version 1)
Quarter: 2012Q4

REPORT INFORMATION
  Report Type: 
  Country: CO (occurrence: CO)
  Receive Date: 20120830
  Receipt Date: 20120830
  Transmission Date: 20130627
  Serious: Yes (Hospitalization)
  Sender: FDA-Public Use
  Company Number: CO-PFIZER INC-2012210090

PATIENT
  Age: 15 Year
  Sex: Female

DRUGS (2)
  1. GENOTROPIN [Suspect]
     Dosage: 4.2 mg, 1x/day
     Route: 058
     Dates: start: 2011, end: 201201
  2. MYCOPHENOLATE MOFETIL [Concomitant]
     Indication: RENAL TRANSPLANT
     Dosage: 500 mg, 1x/day
     Route: 048

REACTIONS (1)
  - Kidney transplant rejection [Recovered/Resolved]
